FAERS Safety Report 19931580 (Version 2)
Quarter: 2021Q4

REPORT INFORMATION
  Report Type: Spontaneous
  Country: US (occurrence: US)
  Receive Date: 20211007
  Receipt Date: 20211019
  Transmission Date: 20220303
  Serious: Yes (Hospitalization, Other)
  Sender: FDA-Public Use
  Company Number: US-TEVA-2021-US-1961126

PATIENT
  Age: 55 Year
  Sex: Male

DRUGS (16)
  1. FENTANYL [Suspect]
     Active Substance: FENTANYL
     Indication: Analgesic intervention supportive therapy
     Dosage: 288 MICROGRAM DAILY; PATCH
     Route: 062
  2. FENTANYL [Suspect]
     Active Substance: FENTANYL
     Indication: Cancer pain
  3. HYDROMORPHONE [Suspect]
     Active Substance: HYDROMORPHONE
     Indication: Analgesic intervention supportive therapy
     Dosage: 5MG
     Route: 042
  4. HYDROMORPHONE [Suspect]
     Active Substance: HYDROMORPHONE
     Indication: Cancer pain
  5. KETOROLAC [Suspect]
     Active Substance: KETOROLAC TROMETHAMINE
     Indication: Cancer pain
     Route: 065
  6. KETOROLAC [Suspect]
     Active Substance: KETOROLAC TROMETHAMINE
     Indication: Analgesic intervention supportive therapy
  7. OXYCODONE [Suspect]
     Active Substance: OXYCODONE
     Indication: Analgesic intervention supportive therapy
     Dosage: 60MG
     Route: 048
  8. OXYCODONE [Suspect]
     Active Substance: OXYCODONE
     Indication: Cancer pain
  9. METHADONE [Suspect]
     Active Substance: METHADONE HYDROCHLORIDE
     Indication: Analgesic intervention supportive therapy
     Dosage: 30MG
     Route: 048
  10. METHADONE [Suspect]
     Active Substance: METHADONE HYDROCHLORIDE
     Indication: Cancer pain
  11. KETALAR [Suspect]
     Active Substance: KETAMINE HYDROCHLORIDE
     Indication: Cancer pain
     Dosage: 100MG
     Route: 041
  12. LIPITOR [Concomitant]
     Active Substance: ATORVASTATIN CALCIUM
     Indication: Dyslipidaemia
     Route: 065
  13. DULCOLAX NOS [Concomitant]
     Active Substance: BISACODYL OR DOCUSATE SODIUM
     Indication: Product used for unknown indication
     Route: 065
  14. GABAPENTIN [Concomitant]
     Active Substance: GABAPENTIN
     Indication: Product used for unknown indication
     Route: 065
  15. TOPROL XL [Concomitant]
     Active Substance: METOPROLOL SUCCINATE
     Indication: Hypertension
     Route: 065
  16. DEXTROSE [Concomitant]
     Active Substance: DEXTROSE
     Indication: Vehicle solution use
     Dosage: 10ML
     Route: 041

REACTIONS (8)
  - Gastrointestinal haemorrhage [Unknown]
  - Acute kidney injury [Unknown]
  - Constipation [Recovering/Resolving]
  - Nausea [Recovering/Resolving]
  - Urinary retention [Recovering/Resolving]
  - Lethargy [Recovering/Resolving]
  - Drug dependence [Recovering/Resolving]
  - Off label use [Unknown]
